FAERS Safety Report 24112638 (Version 1)
Quarter: 2024Q3

REPORT INFORMATION
  Report Type: Report from Study
  Country: US (occurrence: None)
  Receive Date: 20240719
  Receipt Date: 20240719
  Transmission Date: 20241016
  Serious: Yes (Other)
  Sender: ASTRAZENECA
  Company Number: 2020SF24519

PATIENT
  Age: 62 Year
  Sex: Female

DRUGS (16)
  1. FASENRA [Suspect]
     Active Substance: BENRALIZUMAB
     Indication: Asthma
     Route: 058
  2. NEURONTIN [Concomitant]
     Active Substance: GABAPENTIN
  3. KERYDIN [Concomitant]
     Active Substance: TAVABOROLE
  4. PROAIR HFA [Concomitant]
     Active Substance: ALBUTEROL SULFATE
  5. DEXAMETHASONE [Concomitant]
     Active Substance: DEXAMETHASONE
  6. ZOFRAN [Concomitant]
     Active Substance: ONDANSETRON HYDROCHLORIDE
  7. LEUCOVORIN CALCIUM [Concomitant]
     Active Substance: LEUCOVORIN CALCIUM
  8. TRELEGY ELLIPTA [Concomitant]
     Active Substance: FLUTICASONE FUROATE\UMECLIDINIUM BROMIDE\VILANTEROL TRIFENATATE
  9. ALBUTEROL SULFATE [Concomitant]
     Active Substance: ALBUTEROL SULFATE
  10. ADRUCIL [Concomitant]
     Active Substance: FLUOROURACIL
  11. OXALIPLATIN [Concomitant]
     Active Substance: OXALIPLATIN
  12. APREPITANT [Concomitant]
     Active Substance: APREPITANT
  13. XARELTO [Concomitant]
     Active Substance: RIVAROXABAN
  14. QVAR [Concomitant]
     Active Substance: BECLOMETHASONE DIPROPIONATE
  15. POTASSIUM CHLORIDE [Concomitant]
     Active Substance: POTASSIUM CHLORIDE
  16. BEVACIZUMAB [Concomitant]
     Active Substance: BEVACIZUMAB

REACTIONS (2)
  - Colon cancer stage IV [Unknown]
  - Onychomycosis [Unknown]
